FAERS Safety Report 12965219 (Version 1)
Quarter: 2016Q4

REPORT INFORMATION
  Report Type: Spontaneous
  Country: GB (occurrence: GB)
  Receive Date: 20161122
  Receipt Date: 20161122
  Transmission Date: 20170207
  Serious: Yes (Disabling)
  Sender: FDA-Public Use
  Company Number: GB-MYLANLABS-2016M1050109

PATIENT

DRUGS (20)
  1. BETAMETHASONE VALERATE. [Concomitant]
     Active Substance: BETAMETHASONE VALERATE
     Dosage: APPLY AS DIRECTED.
     Dates: start: 20090714
  2. COCODAMOL [Concomitant]
     Active Substance: ACETAMINOPHEN\CODEINE PHOSPHATE
     Dosage: UNK, Q4D TAKE 1 OR 2, 4 TIMES/DAY
     Dates: start: 20161005, end: 20161006
  3. FULTIUM D3 [Concomitant]
     Dosage: 1 DF, QD
     Dates: start: 20160816
  4. VOLTAROL [Concomitant]
     Active Substance: DICLOFENAC SODIUM
     Dosage: 1 DF, TID
     Dates: start: 20160908
  5. DERMOVATE [Concomitant]
     Active Substance: CLOBETASOL
     Dosage: 1 DF, BID (APPLY.)
     Dates: start: 20110113
  6. LORATADINE. [Concomitant]
     Active Substance: LORATADINE
     Dosage: ONE OR TWO TO BE TAKEN DAILY WHEN NEEDED.
     Dates: start: 20161005, end: 20161102
  7. NITROFURANTOIN. [Concomitant]
     Active Substance: NITROFURANTOIN
     Dosage: UNK, Q4D
     Dates: start: 20161031, end: 20161107
  8. SALMETEROL [Concomitant]
     Active Substance: SALMETEROL
     Dosage: 2 DF, BID
     Route: 055
     Dates: start: 20160927
  9. BECLOMETASONE [Concomitant]
     Active Substance: BECLOMETHASONE DIPROPIONATE
     Dosage: 2 DF, BID (PUFFS INTO EACH NOSTRIL.)
     Route: 045
     Dates: start: 20161103
  10. BISOPROLOL [Concomitant]
     Active Substance: BISOPROLOL
     Dosage: 1 DF, QD
     Dates: start: 20160912
  11. CITALOPRAM [Concomitant]
     Active Substance: CITALOPRAM HYDROBROMIDE
     Dosage: 1 DF, QD
     Dates: start: 20160912
  12. CLENIL MODULITE [Concomitant]
     Active Substance: BECLOMETHASONE DIPROPIONATE
     Dosage: 2 DF, UNK (TWICE.)
     Route: 055
     Dates: start: 20160912
  13. FINASTERIDE. [Concomitant]
     Active Substance: FINASTERIDE
     Dosage: 1 DF, QD
     Dates: start: 20090626
  14. LEVOFLOXACIN. [Suspect]
     Active Substance: LEVOFLOXACIN
     Indication: VOMITING
     Dosage: UNK
     Route: 048
     Dates: start: 20161104, end: 20161105
  15. FUROSEMIDE. [Concomitant]
     Active Substance: FUROSEMIDE
     Dosage: 1 DF, QD (EACH MORNING.)
     Dates: start: 20160816
  16. IBUPROFEN. [Concomitant]
     Active Substance: IBUPROFEN
     Indication: PYREXIA
     Dosage: 10-20ML THREE TIMES A DAY AS REQUIRED FOR FEVER OR PAIN
     Dates: start: 20161101, end: 20161102
  17. FOLIC ACID. [Concomitant]
     Active Substance: FOLIC ACID
     Dosage: 1 DF, QD (IN MORNING.)
     Dates: start: 20160816
  18. VENTOLIN [Concomitant]
     Active Substance: ALBUTEROL SULFATE
     Dosage: 2 DF, UNK
     Route: 055
     Dates: start: 20111031
  19. ALLOPURINOL. [Concomitant]
     Active Substance: ALLOPURINOL
     Dosage: 1 DF, QD
     Dates: start: 20130625
  20. THIAMINE. [Concomitant]
     Active Substance: THIAMINE
     Dosage: 1 DF, QD
     Dates: start: 20160908

REACTIONS (3)
  - Malaise [Unknown]
  - Vomiting [Recovered/Resolved]
  - Tremor [Recovered/Resolved]

NARRATIVE: CASE EVENT DATE: 20161105
